FAERS Safety Report 9500443 (Version 1)
Quarter: 2013Q1

REPORT INFORMATION
  Report Type: Spontaneous
  Country: US (occurrence: None)
  Receive Date: 20130107
  Receipt Date: 20130107
  Transmission Date: 20140127
  Serious: Yes (Other)
  Sender: FDA-Public Use
  Company Number: PHEH2012US017507

PATIENT
  Age: 24 Year
  Sex: Male

DRUGS (3)
  1. GILENYA [Suspect]
     Indication: MULTIPLE SCLEROSIS
     Route: 048
     Dates: start: 20120413
  2. CLONAZEPAM (CLONAZEPAM) (CLONAZEPAM) [Concomitant]
  3. BACLOFEN [Concomitant]

REACTIONS (5)
  - Sinusitis [None]
  - Tooth abscess [None]
  - Memory impairment [None]
  - Hypersomnia [None]
  - Visual impairment [None]
